FAERS Safety Report 10992430 (Version 1)
Quarter: 2015Q2

REPORT INFORMATION
  Report Type: Report from Study
  Country: US (occurrence: US)
  Receive Date: 20150406
  Receipt Date: 20150406
  Transmission Date: 20150821
  Serious: Yes (Death, Hospitalization)
  Sender: FDA-Public Use
  Company Number: PHEH2014US024664

PATIENT
  Age: 83 Year
  Sex: Male

DRUGS (2)
  1. EXJADE [Suspect]
     Active Substance: DEFERASIROX
     Indication: MYELODYSPLASTIC SYNDROME
     Route: 065
  2. CARVEDILOL. [Concomitant]
     Active Substance: CARVEDILOL
     Indication: ARRHYTHMIA
     Route: 065
     Dates: start: 20150126

REACTIONS (9)
  - Cholecystitis acute [Unknown]
  - General physical health deterioration [Unknown]
  - Extradural abscess [Fatal]
  - Feeding tube complication [Unknown]
  - Post procedural complication [Unknown]
  - Ascites [Unknown]
  - Cardiac failure congestive [Unknown]
  - Sepsis [Unknown]
  - Pneumonia [Unknown]

NARRATIVE: CASE EVENT DATE: 20150211
